FAERS Safety Report 12855687 (Version 1)
Quarter: 2016Q4

REPORT INFORMATION
  Report Type: Spontaneous
  Country: US (occurrence: US)
  Receive Date: 20161017
  Receipt Date: 20161017
  Transmission Date: 20170207
  Serious: Yes (Hospitalization)
  Sender: FDA-Public Use
  Company Number: US-ROCHE-1841466

PATIENT
  Age: 40 Year
  Sex: Female

DRUGS (7)
  1. ATIVAN [Concomitant]
     Active Substance: LORAZEPAM
     Indication: ANXIETY
  2. ATIVAN [Concomitant]
     Active Substance: LORAZEPAM
     Indication: ASTHMA
  3. KLONOPIN [Suspect]
     Active Substance: CLONAZEPAM
     Indication: ASTHMA
  4. KLONOPIN [Suspect]
     Active Substance: CLONAZEPAM
     Indication: AGORAPHOBIA
     Dosage: THREE TIMES A DAY
     Route: 048
  5. ATIVAN [Concomitant]
     Active Substance: LORAZEPAM
     Indication: AGORAPHOBIA
     Dosage: TWICE A DAY
     Route: 065
  6. KLONOPIN [Suspect]
     Active Substance: CLONAZEPAM
     Indication: ANXIETY
  7. KLONOPIN [Suspect]
     Active Substance: CLONAZEPAM
     Indication: DYSPNOEA

REACTIONS (9)
  - Hypoaesthesia [Recovered/Resolved]
  - Asthma [Recovered/Resolved]
  - Dyspnoea [Recovered/Resolved]
  - Medication error [Unknown]
  - Insomnia [Recovered/Resolved]
  - Orgasm abnormal [Recovered/Resolved]
  - Asthma [Unknown]
  - Chest pain [Unknown]
  - Tremor [Recovered/Resolved]
